FAERS Safety Report 6588916-1 (Version None)
Quarter: 2010Q1

REPORT INFORMATION
  Report Type: 
  Country: None (occurrence: None)
  Receive Date: 20100218
  Receipt Date: 20100204
  Transmission Date: 20100710
  Serious: Yes (Hospitalization)
  Sender: FDA-Public Use
  Company Number: 2007BI015990

PATIENT
  Age: 39 Year
  Sex: Female

DRUGS (3)
  1. TYSABRI [Suspect]
     Indication: MULTIPLE SCLEROSIS
     Route: 042
     Dates: start: 20071129
  2. TYSABRI [Suspect]
     Route: 042
     Dates: start: 20070425, end: 20070618
  3. LEXAPRO [Concomitant]
     Dates: end: 20070401

REACTIONS (2)
  - MULTIPLE SCLEROSIS [None]
  - PREMATURE LABOUR [None]
